FAERS Safety Report 8797125 (Version 2)
Quarter: 2012Q4

REPORT INFORMATION
  Report Type: 
  Country: BR (occurrence: BR)
  Receive Date: 20120920
  Receipt Date: 20121003
  Transmission Date: 20130627
  Serious: Yes (Death, Hospitalization)
  Sender: FDA-Public Use
  Company Number: BR-B.I. PHARMACEUTICALS,INC./RIDGEFIELD-2012-BR-01065BR

PATIENT
  Age: 55 Year
  Sex: Female

DRUGS (3)
  1. SPIRIVA RESPIMAT [Suspect]
     Indication: EMPHYSEMA
     Dosage: 5 mcg
     Route: 055
     Dates: end: 20120830
  2. SPIRIVA RESPIMAT [Suspect]
     Indication: BRONCHITIS
  3. FORASEQ [Concomitant]
     Indication: BRONCHITIS

REACTIONS (2)
  - Emphysema [Fatal]
  - Dyspnoea [Unknown]
